FAERS Safety Report 16392754 (Version 3)
Quarter: 2020Q3

REPORT INFORMATION
  Report Type: Other
  Country: CA (occurrence: CA)
  Receive Date: 20190605
  Receipt Date: 20200907
  Transmission Date: 20201102
  Serious: Yes (Other)
  Sender: FDA-Public Use
  Company Number: CA-ROCHE-2268548

PATIENT
  Sex: Female

DRUGS (10)
  1. ADVAIR HFA [Concomitant]
     Active Substance: FLUTICASONE PROPIONATE\SALMETEROL XINAFOATE
     Indication: ASTHMA
  2. CBD OIL [Concomitant]
     Active Substance: CANNABIDIOL\HERBALS
     Indication: PAIN
  3. TURMERIC [Concomitant]
     Active Substance: HERBALS\TURMERIC
  4. ATORVASTATIN [Concomitant]
     Active Substance: ATORVASTATIN
  5. TECTA [Concomitant]
     Active Substance: PANTOPRAZOLE MAGNESIUM
     Indication: GASTROOESOPHAGEAL REFLUX DISEASE
     Dosage: AT MORNING AND NIGHT
  6. OCREVUS [Suspect]
     Active Substance: OCRELIZUMAB
     Indication: RELAPSING-REMITTING MULTIPLE SCLEROSIS
     Dosage: 300 MG AT DAY 0 AND 14, THEN 600 MG ONCE IN SIX MONTHS
     Route: 042
     Dates: start: 20180918
  7. VITAMIN B12 [Concomitant]
     Active Substance: CYANOCOBALAMIN
  8. TECTA [Concomitant]
     Active Substance: PANTOPRAZOLE MAGNESIUM
     Indication: DYSPEPSIA
  9. AMITRIPTYLINE [Concomitant]
     Active Substance: AMITRIPTYLINE
  10. CRANBERRY. [Concomitant]
     Active Substance: CRANBERRY

REACTIONS (4)
  - B-lymphocyte count decreased [Unknown]
  - Asthenia [Unknown]
  - Multiple sclerosis relapse [Not Recovered/Not Resolved]
  - Therapeutic response decreased [Unknown]
